FAERS Safety Report 5889467-X (Version None)
Quarter: 2008Q3

REPORT INFORMATION
  Report Type: 
  Country: None (occurrence: None)
  Receive Date: 20080915
  Receipt Date: 20080904
  Transmission Date: 20090109
  Serious: Yes (Other)
  Sender: FDA-Public Use
  Company Number: CART-1000016

PATIENT
  Sex: Female

DRUGS (1)
  1. CARTICEL [Suspect]
     Indication: CHONDROPATHY
     Dosage: INTRA-ARTICULAR
     Route: 014

REACTIONS (1)
  - GRANULOMA [None]
